FAERS Safety Report 11075332 (Version 1)
Quarter: 2015Q2

REPORT INFORMATION
  Report Type: Spontaneous
  Country: US (occurrence: None)
  Receive Date: 20150428
  Receipt Date: 20150428
  Transmission Date: 20150821
  Serious: Yes (Other)
  Sender: FDA-Public Use
  Company Number: None

PATIENT
  Sex: Female

DRUGS (2)
  1. BUPROPION ER [Suspect]
     Active Substance: BUPROPION
     Indication: DEPRESSION
     Route: 048
     Dates: start: 201410
  2. BUPROPION ER [Suspect]
     Active Substance: BUPROPION
     Indication: ANXIETY
     Route: 048
     Dates: start: 201410

REACTIONS (5)
  - Depression [None]
  - Product substitution issue [None]
  - Adjustment disorder [None]
  - Paranoia [None]
  - Drug ineffective [None]

NARRATIVE: CASE EVENT DATE: 201503
